FAERS Safety Report 9830878 (Version 1)
Quarter: 2014Q1

REPORT INFORMATION
  Report Type: Spontaneous
  Country: FR (occurrence: FR)
  Receive Date: 20140120
  Receipt Date: 20140120
  Transmission Date: 20141002
  Serious: Yes (Other)
  Sender: FDA-Public Use
  Company Number: PHHY2013FR155227

PATIENT
  Sex: 0

DRUGS (3)
  1. NICARDIPINE [Suspect]
     Dosage: MATERNAL DOSE, 50 MG, THREE TIMES A DAY
     Route: 064
  2. LABETALOL [Suspect]
     Dosage: MATERNAL DOSE, 200MG, FOUR TIMES A DAY
     Route: 064
  3. MOLSIDOMINE [Suspect]
     Dosage: MATERNAL DOSE, 2MG, FOUR TIMES A DAY
     Route: 064

REACTIONS (2)
  - Premature baby [Unknown]
  - Foetal exposure during pregnancy [Unknown]
